FAERS Safety Report 8016308-7 (Version None)
Quarter: 2011Q4

REPORT INFORMATION
  Report Type: 
  Country: None (occurrence: None)
  Receive Date: 20111230
  Receipt Date: 20111227
  Transmission Date: 20120403
  Serious: Yes (Hospitalization, Other)
  Sender: FDA-Public Use
  Company Number: US-MERCK-1109USA00864

PATIENT
  Age: 71 Year
  Sex: Female
  Weight: 82 kg

DRUGS (1)
  1. FOSAMAX [Suspect]
     Indication: OSTEOPOROSIS
     Route: 048
     Dates: start: 20050101, end: 20101201

REACTIONS (21)
  - ATRIAL FIBRILLATION [None]
  - SLEEP APNOEA SYNDROME [None]
  - BURSITIS [None]
  - HYPERSENSITIVITY [None]
  - CHRONIC OBSTRUCTIVE PULMONARY DISEASE [None]
  - TACHYCARDIA [None]
  - HYPONATRAEMIA [None]
  - CONSTIPATION [None]
  - UTERINE DISORDER [None]
  - ARTHROPATHY [None]
  - GASTROOESOPHAGEAL REFLUX DISEASE [None]
  - GALLBLADDER DISORDER [None]
  - DIABETES MELLITUS [None]
  - FEMUR FRACTURE [None]
  - ANAEMIA OF CHRONIC DISEASE [None]
  - TACHYPNOEA [None]
  - HYPOTHYROIDISM [None]
  - BLOOD CHOLESTEROL INCREASED [None]
  - HYPERTENSION [None]
  - RESTLESS LEGS SYNDROME [None]
  - RIB FRACTURE [None]
